FAERS Safety Report 7276006-4 (Version None)
Quarter: 2011Q1

REPORT INFORMATION
  Report Type: 
  Country: None (occurrence: None)
  Receive Date: 20110204
  Receipt Date: 20110126
  Transmission Date: 20110831
  Serious: Yes (Other)
  Sender: FDA-Public Use
  Company Number: B0693757A

PATIENT
  Age: 63 Year
  Sex: Male
  Weight: 77 kg

DRUGS (1)
  1. DUTASTERIDE/TAMSULIN HYDROCHLORIDE [Suspect]
     Route: 048
     Dates: start: 20101101, end: 20101214

REACTIONS (4)
  - MALAISE [None]
  - EOSINOPHILIA [None]
  - PYREXIA [None]
  - MYALGIA [None]
